FAERS Safety Report 15721700 (Version 2)
Quarter: 2018Q4

REPORT INFORMATION
  Report Type: Spontaneous
  Country: CA (occurrence: CA)
  Receive Date: 20181214
  Receipt Date: 20181229
  Transmission Date: 20190205
  Serious: Yes (Disabling)
  Sender: FDA-Public Use
  Company Number: CA-AUROBINDO-AUR-APL-2018-059391

PATIENT
  Age: 55 Year
  Sex: Female
  Weight: 115 kg

DRUGS (1)
  1. AURO-ZIPRASIDONE CAPSULES [Suspect]
     Active Substance: ZIPRASIDONE
     Indication: DEPRESSION
     Dosage: 120 MILLIGRAM, ONCE A DAY
     Route: 048

REACTIONS (4)
  - Nightmare [Not Recovered/Not Resolved]
  - Depression [Not Recovered/Not Resolved]
  - Product substitution issue [Not Recovered/Not Resolved]
  - Intrusive thoughts [Not Recovered/Not Resolved]
